FAERS Safety Report 23223163 (Version 1)
Quarter: 2023Q4

REPORT INFORMATION
  Report Type: Spontaneous
  Country: None (occurrence: CN)
  Receive Date: 20231123
  Receipt Date: 20231123
  Transmission Date: 20240109
  Serious: Yes (Life-Threatening, Hospitalization, Other)
  Sender: FDA-Public Use
  Company Number: CN-Jiangsu Hansoh Pharmaceutical Co., Ltd-2148640

PATIENT
  Age: 76 Year
  Sex: Male

DRUGS (2)
  1. GEMCITABINE [Suspect]
     Active Substance: GEMCITABINE
     Indication: Ureteric cancer
     Route: 041
     Dates: start: 20231016, end: 20231016
  2. CARBOPLATIN [Suspect]
     Active Substance: CARBOPLATIN
     Route: 041
     Dates: start: 20231016, end: 20231016

REACTIONS (1)
  - Myelosuppression [Recovering/Resolving]

NARRATIVE: CASE EVENT DATE: 20231031
